FAERS Safety Report 15300230 (Version 1)
Quarter: 2018Q3

REPORT INFORMATION
  Report Type: Spontaneous
  Country: ES (occurrence: ES)
  Receive Date: 20180821
  Receipt Date: 20180821
  Transmission Date: 20181010
  Serious: Yes (Hospitalization, Congenital Anomaly, Other)
  Sender: FDA-Public Use
  Company Number: ES-AUROBINDO-AUR-APL-2018-042540

PATIENT
  Age: 36 Week
  Sex: Male

DRUGS (2)
  1. OLMESARTAN FILM COATED TABLETS [Suspect]
     Active Substance: OLMESARTAN
     Indication: HYPERTENSION
     Dosage: UNK, QD ()
     Route: 064
  2. AMLODIPINE [Concomitant]
     Active Substance: AMLODIPINE BESYLATE
     Indication: HYPERTENSION
     Dosage: UNK, QD ()
     Route: 064

REACTIONS (16)
  - Pulmonary hypoplasia [Unknown]
  - Anuria [Unknown]
  - Gaze palsy [Unknown]
  - Micrognathia [Unknown]
  - Oligohydramnios [Unknown]
  - Premature baby [Unknown]
  - Hypotonia neonatal [Unknown]
  - Fontanelle bulging [Unknown]
  - Finger deformity [Unknown]
  - Exposure during pregnancy [Unknown]
  - Cartilage-hair hypoplasia [Unknown]
  - Pneumothorax [Unknown]
  - Areflexia [Unknown]
  - Strabismus [Unknown]
  - Renal failure [Recovering/Resolving]
  - Potter^s syndrome [Unknown]
